FAERS Safety Report 18474256 (Version 1)
Quarter: 2020Q4

REPORT INFORMATION
  Report Type: Spontaneous
  Country: US (occurrence: US)
  Receive Date: 20201106
  Receipt Date: 20201106
  Transmission Date: 20210114
  Serious: No
  Sender: FDA-Public Use
  Company Number: US-PFIZER INC-2020428285

PATIENT
  Age: 62 Year
  Sex: Female
  Weight: 95.24 kg

DRUGS (3)
  1. SOMATULINE DEPOT [Concomitant]
     Active Substance: LANREOTIDE ACETATE
     Dosage: UNK
  2. SANDOSTATIN LAR DEPOT [Concomitant]
     Active Substance: OCTREOTIDE ACETATE
     Dosage: UNK
  3. SUTENT [Suspect]
     Active Substance: SUNITINIB MALATE
     Indication: NEUROENDOCRINE TUMOUR
     Dosage: 37.5 MG, CYCLIC (FREQUENCY: DAILY 21 DAYS)
     Route: 048
     Dates: start: 201511

REACTIONS (1)
  - Abdominal pain [Unknown]
